FAERS Safety Report 20630645 (Version 1)
Quarter: 2022Q1

REPORT INFORMATION
  Report Type: Report from Study
  Country: US (occurrence: US)
  Receive Date: 20220324
  Receipt Date: 20220324
  Transmission Date: 20220423
  Serious: Yes (Hospitalization)
  Sender: FDA-Public Use
  Company Number: US-ABBVIE-21K-163-4067331-00

PATIENT
  Sex: Female

DRUGS (4)
  1. HUMIRA [Suspect]
     Active Substance: ADALIMUMAB
     Indication: Colitis ulcerative
     Dosage: DAY 1
     Route: 058
     Dates: start: 20210706, end: 20210706
  2. HUMIRA [Suspect]
     Active Substance: ADALIMUMAB
     Dosage: DAY 15
     Route: 058
     Dates: start: 20210720, end: 20210720
  3. HUMIRA [Suspect]
     Active Substance: ADALIMUMAB
     Dosage: DAY 29
     Route: 058
     Dates: start: 20210803
  4. HUMIRA [Suspect]
     Active Substance: ADALIMUMAB
     Route: 058

REACTIONS (18)
  - Blood pressure abnormal [Recovered/Resolved]
  - Iron deficiency anaemia [Recovered/Resolved]
  - Chest pain [Recovered/Resolved]
  - Pain [Recovered/Resolved]
  - Pneumonia [Recovered/Resolved]
  - Haemorrhage [Recovered/Resolved]
  - Loss of personal independence in daily activities [Unknown]
  - Neuropathy peripheral [Not Recovered/Not Resolved]
  - Anxiety [Recovered/Resolved]
  - Constipation [Unknown]
  - Flatulence [Not Recovered/Not Resolved]
  - Faeces hard [Unknown]
  - Decreased appetite [Unknown]
  - Abdominal distension [Unknown]
  - Rhinorrhoea [Not Recovered/Not Resolved]
  - Arthralgia [Not Recovered/Not Resolved]
  - Depressed mood [Not Recovered/Not Resolved]
  - Colitis ulcerative [Recovered/Resolved]

NARRATIVE: CASE EVENT DATE: 20210101
